FAERS Safety Report 20301618 (Version 2)
Quarter: 2022Q2

REPORT INFORMATION
  Report Type: Spontaneous
  Country: US (occurrence: US)
  Receive Date: 20220105
  Receipt Date: 20220421
  Transmission Date: 20220720
  Serious: No
  Sender: FDA-Public Use
  Company Number: US-PFIZER INC-202101843887

PATIENT
  Age: 64 Year
  Sex: Male

DRUGS (2)
  1. INLYTA [Suspect]
     Active Substance: AXITINIB
     Indication: Renal cancer
     Dosage: 5 MG, 2X/DAY (EVERY 12 HOURS. TAKE WHOLE WITH WATER,WITH OR WITHOUT FOOD)
     Route: 048
  2. KEYTRUDA [Suspect]
     Active Substance: PEMBROLIZUMAB
     Dosage: UNK

REACTIONS (6)
  - Diarrhoea [Unknown]
  - Cough [Unknown]
  - Arthralgia [Unknown]
  - Odynophagia [Unknown]
  - Aphonia [Unknown]
  - Insomnia [Unknown]
